FAERS Safety Report 18156855 (Version 2)
Quarter: 2020Q3

REPORT INFORMATION
  Report Type: Spontaneous
  Country: US (occurrence: US)
  Receive Date: 20200817
  Receipt Date: 20200903
  Transmission Date: 20201103
  Serious: No
  Sender: FDA-Public Use
  Company Number: US-JNJFOC-20200823089

PATIENT

DRUGS (2)
  1. XARELTO [Suspect]
     Active Substance: RIVAROXABAN
     Indication: PRODUCT USED FOR UNKNOWN INDICATION
     Route: 048
  2. XARELTO [Suspect]
     Active Substance: RIVAROXABAN
     Route: 048
     Dates: start: 202004

REACTIONS (20)
  - Sinus pain [Unknown]
  - Myalgia [Recovering/Resolving]
  - Fluid retention [Unknown]
  - Depression [Unknown]
  - Palpitations [Unknown]
  - Muscle spasms [Unknown]
  - Panic attack [Unknown]
  - Sinusitis [Unknown]
  - Stomatitis [Recovering/Resolving]
  - Bruxism [Unknown]
  - Weight decreased [Unknown]
  - Alopecia [Recovered/Resolved]
  - Memory impairment [Unknown]
  - Anxiety [Unknown]
  - Oropharyngeal pain [Recovering/Resolving]
  - Hypoaesthesia [Unknown]
  - Product quality issue [Unknown]
  - Hyperaesthesia teeth [Recovered/Resolved]
  - Toothache [Unknown]
  - Wrong technique in product usage process [Unknown]
